FAERS Safety Report 11101306 (Version 2)
Quarter: 2015Q3

REPORT INFORMATION
  Report Type: Spontaneous
  Country: US (occurrence: US)
  Receive Date: 20150508
  Receipt Date: 20150706
  Transmission Date: 20151125
  Serious: No
  Sender: FDA-Public Use
  Company Number: US-PFIZER INC-2015151889

PATIENT
  Age: 70 Year
  Sex: Female
  Weight: 52 kg

DRUGS (1)
  1. GABAPENTIN. [Suspect]
     Active Substance: GABAPENTIN
     Indication: PAIN
     Dosage: UNK
     Dates: start: 2015

REACTIONS (1)
  - Drug ineffective [Unknown]

NARRATIVE: CASE EVENT DATE: 2015
